FAERS Safety Report 5201169-1 (Version None)
Quarter: 2007Q1

REPORT INFORMATION
  Report Type: 
  Country: None (occurrence: None)
  Receive Date: 20070108
  Receipt Date: 20070102
  Transmission Date: 20070707
  Serious: Yes (Life-Threatening, Hospitalization)
  Sender: FDA-Public Use
  Company Number: NO-MERCK-0701NOR00001

PATIENT
  Age: 86 Year
  Sex: Male

DRUGS (6)
  1. FOSAMAX [Suspect]
     Indication: OSTEOPOROSIS
     Route: 048
     Dates: end: 20061213
  2. SPIRONOLACTONE [Concomitant]
     Route: 048
  3. WARFARIN SODIUM [Concomitant]
     Route: 048
  4. FUROSEMIDE [Concomitant]
     Route: 048
  5. BENSERAZIDE HYDROCHLORIDE AND LEVODOPA [Concomitant]
     Route: 048
  6. RAMIPRIL [Concomitant]
     Route: 048

REACTIONS (1)
  - GASTRIC ULCER PERFORATION [None]
